FAERS Safety Report 9988312 (Version 1)
Quarter: 2014Q1

REPORT INFORMATION
  Report Type: Spontaneous
  Country: ES (occurrence: ES)
  Receive Date: 20140310
  Receipt Date: 20140310
  Transmission Date: 20141002
  Serious: Yes (Hospitalization)
  Sender: FDA-Public Use
  Company Number: PHHY2014ES022392

PATIENT
  Age: 81 Year
  Sex: Female

DRUGS (1)
  1. GALANTAMINE [Suspect]
     Indication: DEMENTIA ALZHEIMER^S TYPE

REACTIONS (11)
  - Acute generalised exanthematous pustulosis [Recovered/Resolved]
  - Rash pruritic [Recovered/Resolved]
  - Temperature regulation disorder [Recovered/Resolved]
  - Erythema [Recovered/Resolved]
  - Rash pustular [Recovered/Resolved]
  - Skin lesion [Recovered/Resolved]
  - Skin erosion [Recovered/Resolved]
  - Leukocytosis [Recovered/Resolved]
  - Neutrophilia [Recovered/Resolved]
  - Blood fibrinogen increased [Recovered/Resolved]
  - C-reactive protein increased [Recovered/Resolved]
